FAERS Safety Report 13915987 (Version 1)
Quarter: 2017Q3

REPORT INFORMATION
  Report Type: Spontaneous
  Country: US (occurrence: US)
  Receive Date: 20170829
  Receipt Date: 20170829
  Transmission Date: 20171127
  Serious: Yes (Hospitalization, Other)
  Sender: FDA-Public Use
  Company Number: US-SUN PHARMACEUTICAL INDUSTRIES LTD-2016US-110360

PATIENT
  Age: 11 Year
  Sex: Female
  Weight: 35 kg

DRUGS (16)
  1. MIDAZOLAM [Concomitant]
     Active Substance: MIDAZOLAM HYDROCHLORIDE
     Dosage: 0.05 MG/KG, Q1H (EVENRY 4 TO 6 HOURS)
     Route: 065
  2. FENTANYL. [Concomitant]
     Active Substance: FENTANYL
     Dosage: 0.2 ?G/KG, Q1H
     Route: 065
  3. FENTANYL. [Concomitant]
     Active Substance: FENTANYL
     Indication: PAIN
     Dosage: 2.2 ?G/KG, Q1H
     Route: 065
  4. FENTANYL. [Concomitant]
     Active Substance: FENTANYL
     Dosage: 20 ?G, Q2H (BOLUSES)
     Route: 065
  5. FENTANYL. [Concomitant]
     Active Substance: FENTANYL
     Dosage: 3 ?G/KG, Q1H
     Route: 065
  6. MIDAZOLAM [Concomitant]
     Active Substance: MIDAZOLAM HYDROCHLORIDE
     Indication: SEDATION
     Dosage: 0.1 MG/KG, Q1H
     Route: 065
  7. MIDAZOLAM [Concomitant]
     Active Substance: MIDAZOLAM HYDROCHLORIDE
     Indication: AGITATION
     Dosage: 2 MG, PRN (EVERY 8 HOURS)
     Route: 065
  8. DOPAMINE [Concomitant]
     Active Substance: DOPAMINE\DOPAMINE HYDROCHLORIDE
     Dosage: TITRATED 2 TO 20 ?G/KG/MIN
     Route: 065
  9. NOREPINEPHRINE. [Concomitant]
     Active Substance: NOREPINEPHRINE
     Dosage: TITRATED 0.01 AND 0.3 ?G/KG/MIN
     Route: 065
  10. DEXMEDETOMIDINE. [Suspect]
     Active Substance: DEXMEDETOMIDINE
     Dosage: 0.5 ?G/KG, Q1H
     Route: 065
  11. FENTANYL. [Concomitant]
     Active Substance: FENTANYL
     Indication: SEDATION
     Dosage: 2 ?G/KG, Q1H
     Route: 065
  12. DEXMEDETOMIDINE. [Suspect]
     Active Substance: DEXMEDETOMIDINE
     Indication: PRODUCT USED FOR UNKNOWN INDICATION
     Dosage: 1 ?G/KG, Q1H
     Route: 065
  13. DEXMEDETOMIDINE. [Suspect]
     Active Substance: DEXMEDETOMIDINE
     Dosage: 0.6 ?G/KG, UNK
     Route: 065
  14. DEXMEDETOMIDINE. [Suspect]
     Active Substance: DEXMEDETOMIDINE
     Dosage: 0.7 ?G/KG, Q1H
     Route: 065
  15. DEXMEDETOMIDINE. [Suspect]
     Active Substance: DEXMEDETOMIDINE
     Dosage: 0.1 ?G/KG, Q4H
     Route: 065
  16. MIDAZOLAM [Concomitant]
     Active Substance: MIDAZOLAM HYDROCHLORIDE
     Dosage: 0.2 MG/KG, Q1H
     Route: 065

REACTIONS (3)
  - Hypertensive crisis [Recovering/Resolving]
  - Posterior reversible encephalopathy syndrome [Recovering/Resolving]
  - Withdrawal syndrome [Recovering/Resolving]
